FAERS Safety Report 15546338 (Version 1)
Quarter: 2018Q4

REPORT INFORMATION
  Report Type: Spontaneous
  Country: DE (occurrence: DE)
  Receive Date: 20181024
  Receipt Date: 20181024
  Transmission Date: 20190205
  Serious: Yes (Other)
  Sender: FDA-Public Use
  Company Number: DE-CELGENEUS-DEU-20181006210

PATIENT
  Age: 78 Year
  Sex: Male
  Weight: 79 kg

DRUGS (4)
  1. AZACITIDINE. [Suspect]
     Active Substance: AZACITIDINE
     Indication: MYELODYSPLASTIC SYNDROME
  2. GRANISETRON [Concomitant]
     Active Substance: GRANISETRON
     Indication: ANTIEMETIC SUPPORTIVE CARE
     Dosage: 2 MILLIGRAM
     Route: 048
     Dates: start: 20181015, end: 20181019
  3. AZACITIDINE. [Suspect]
     Active Substance: AZACITIDINE
     Indication: ACUTE MYELOID LEUKAEMIA
     Route: 058
     Dates: start: 20181015, end: 20181019
  4. AZACITIDINE. [Suspect]
     Active Substance: AZACITIDINE
     Indication: OFF LABEL USE

REACTIONS (4)
  - Back pain [Unknown]
  - Spinal fracture [Unknown]
  - Asthenia [Unknown]
  - Thrombocytopenia [Unknown]

NARRATIVE: CASE EVENT DATE: 20181017
